FAERS Safety Report 18319467 (Version 1)
Quarter: 2020Q3

REPORT INFORMATION
  Report Type: Spontaneous
  Country: US (occurrence: US)
  Receive Date: 20200928
  Receipt Date: 20200928
  Transmission Date: 20201103
  Serious: No
  Sender: FDA-Public Use
  Company Number: US-TEVA-2020-US-1834120

PATIENT
  Sex: Female

DRUGS (1)
  1. CLONAZEPAM ACTAVIS [Suspect]
     Active Substance: CLONAZEPAM
     Indication: SLEEP DISORDER
     Route: 065

REACTIONS (8)
  - Anger [Unknown]
  - Heart rate increased [Unknown]
  - Insomnia [Unknown]
  - Off label use [Unknown]
  - Abnormal dreams [Unknown]
  - Emotional disorder [Unknown]
  - Gait disturbance [Unknown]
  - Feeling abnormal [Unknown]
